FAERS Safety Report 9742569 (Version 2)
Quarter: 2015Q3

REPORT INFORMATION
  Report Type: Spontaneous
  Country: US (occurrence: US)
  Receive Date: 20131210
  Receipt Date: 20150804
  Transmission Date: 20151125
  Serious: No
  Sender: FDA-Public Use
  Company Number: US-GILEAD-2009-0024521

PATIENT
  Age: 64 Year
  Sex: Male
  Weight: 88.45 kg

DRUGS (17)
  1. LETAIRIS [Suspect]
     Active Substance: AMBRISENTAN
     Indication: PULMONARY ARTERIAL HYPERTENSION
     Route: 048
     Dates: start: 20090305
  2. LEVAQUIN [Concomitant]
     Active Substance: LEVOFLOXACIN
  3. SPRIVA CP-HANDIHALER [Concomitant]
  4. VIAGRA [Concomitant]
     Active Substance: SILDENAFIL CITRATE
  5. SINGULAIR [Concomitant]
     Active Substance: MONTELUKAST SODIUM
  6. COREG CR [Concomitant]
     Active Substance: CARVEDILOL PHOSPHATE
  7. PREVACID [Concomitant]
     Active Substance: LANSOPRAZOLE
  8. PRINIVIL [Concomitant]
     Active Substance: LISINOPRIL
  9. PRILOSEC [Concomitant]
     Active Substance: OMEPRAZOLE MAGNESIUM
  10. LASIX [Concomitant]
     Active Substance: FUROSEMIDE
  11. ADVAIR HFA [Concomitant]
     Active Substance: FLUTICASONE PROPIONATE\SALMETEROL XINAFOATE
  12. TYLENOL [Concomitant]
     Active Substance: ACETAMINOPHEN
  13. ALBUTEROL INHALER [Concomitant]
     Active Substance: ALBUTEROL
  14. GLUCOPHAGE [Concomitant]
     Active Substance: METFORMIN HYDROCHLORIDE
  15. LOVASTATIN. [Concomitant]
     Active Substance: LOVASTATIN
  16. VENTOLIN [Concomitant]
     Active Substance: ALBUTEROL SULFATE
  17. LOVASTATIN. [Concomitant]
     Active Substance: LOVASTATIN

REACTIONS (1)
  - Swelling [Unknown]
